FAERS Safety Report 12481756 (Version 1)
Quarter: 2016Q2

REPORT INFORMATION
  Report Type: Spontaneous
  Country: GB (occurrence: GB)
  Receive Date: 20160620
  Receipt Date: 20160620
  Transmission Date: 20160815
  Serious: Yes (Other)
  Sender: FDA-Public Use
  Company Number: PHHY2016GB081226

PATIENT
  Age: 70 Year
  Sex: Female

DRUGS (2)
  1. LEFLUNOMIDE. [Suspect]
     Active Substance: LEFLUNOMIDE
     Indication: PRODUCT USED FOR UNKNOWN INDICATION
     Dosage: 10 MG, ON MONDAYS, WEDNESDAYS AND FRIDAYS
     Route: 065
  2. ENBREL [Suspect]
     Active Substance: ETANERCEPT
     Indication: RHEUMATOID ARTHRITIS
     Dosage: 50 MG, WEEKLY
     Route: 058
     Dates: start: 20150602, end: 20160204

REACTIONS (9)
  - Sluggishness [Unknown]
  - Cardiac failure [Unknown]
  - Heart rate irregular [Unknown]
  - Joint dislocation [Recovering/Resolving]
  - Diarrhoea [Unknown]
  - Osteoarthritis [Recovering/Resolving]
  - Blood pressure increased [Recovering/Resolving]
  - Palpitations [Recovered/Resolved]
  - Rash [Recovered/Resolved]

NARRATIVE: CASE EVENT DATE: 201506
